FAERS Safety Report 12860093 (Version 2)
Quarter: 2016Q4

REPORT INFORMATION
  Report Type: Report from Study
  Country: US (occurrence: US)
  Receive Date: 20161019
  Receipt Date: 20161025
  Transmission Date: 20170207
  Serious: No
  Sender: FDA-Public Use
  Company Number: US-ASTRAZENECA-2016SF09612

PATIENT
  Age: 30417 Day
  Sex: Female
  Weight: 58.1 kg

DRUGS (9)
  1. ESOMEPRAZOLE [Suspect]
     Active Substance: ESOMEPRAZOLE
     Indication: GASTROOESOPHAGEAL REFLUX DISEASE
     Route: 048
     Dates: start: 2008
  2. SPIRVA [Concomitant]
     Indication: RESPIRATORY DISORDER
     Dosage: ONE PUFF DAILY
     Route: 055
     Dates: start: 2015
  3. SIMVASTATIN. [Concomitant]
     Active Substance: SIMVASTATIN
     Route: 048
     Dates: start: 2011
  4. AMLODIPINE-BENAZETRIL [Concomitant]
     Dosage: 5/10 ONE TABLET DAILY
     Route: 048
  5. PREDNISONE. [Concomitant]
     Active Substance: PREDNISONE
     Indication: RESPIRATORY TRACT INFECTION
     Route: 048
     Dates: start: 20161005
  6. LEVOFLOXIN [Concomitant]
     Active Substance: LEVOFLOXACIN
     Indication: RESPIRATORY TRACT INFECTION
     Route: 048
     Dates: start: 20161005
  7. DALIRESP [Suspect]
     Active Substance: ROFLUMILAST
     Indication: CHRONIC OBSTRUCTIVE PULMONARY DISEASE
     Route: 048
     Dates: start: 20161012
  8. SYMBICORT [Suspect]
     Active Substance: BUDESONIDE\FORMOTEROL FUMARATE DIHYDRATE
     Indication: CHRONIC OBSTRUCTIVE PULMONARY DISEASE
     Dosage: 160/4.5 TWO PUFFS TWICE PER DAY
     Route: 055
     Dates: start: 201402
  9. PREDNISONE. [Concomitant]
     Active Substance: PREDNISONE
     Indication: RESPIRATORY TRACT INFECTION
     Dosage: DOSE WAS DECREASED.
     Route: 048

REACTIONS (6)
  - Nervousness [Unknown]
  - Respiratory disorder [Unknown]
  - Dyspnoea [Unknown]
  - Secretion discharge [Unknown]
  - Cough [Unknown]
  - Respiratory tract infection [Unknown]

NARRATIVE: CASE EVENT DATE: 20161005
